FAERS Safety Report 6749793-9 (Version None)
Quarter: 2010Q2

REPORT INFORMATION
  Report Type: 
  Country: None (occurrence: None)
  Receive Date: 20100601
  Receipt Date: 20100521
  Transmission Date: 20101027
  Serious: Yes (Other)
  Sender: FDA-Public Use
  Company Number: US-MERCK-1005USA04048

PATIENT
  Age: 42 Month
  Sex: Male

DRUGS (2)
  1. SINGULAIR [Suspect]
     Indication: ASTHMA
     Route: 048
  2. SINGULAIR [Suspect]
     Indication: HYPERSENSITIVITY
     Route: 048

REACTIONS (12)
  - AGGRESSION [None]
  - ANTISOCIAL BEHAVIOUR [None]
  - CRYING [None]
  - DEPRESSION [None]
  - ENURESIS [None]
  - IMPATIENCE [None]
  - INSOMNIA [None]
  - MOOD ALTERED [None]
  - NIGHTMARE [None]
  - PHYSICAL ASSAULT [None]
  - SCHOOL REFUSAL [None]
  - THINKING ABNORMAL [None]
